FAERS Safety Report 5676423-X (Version None)
Quarter: 2008Q1

REPORT INFORMATION
  Report Type: 
  Country: None (occurrence: None)
  Receive Date: 20080321
  Receipt Date: 20080314
  Transmission Date: 20080703
  Serious: Yes (Disabling)
  Sender: FDA-Public Use
  Company Number: GB-PFIZER INC-2008024793

PATIENT
  Sex: Male

DRUGS (4)
  1. VIAGRA [Suspect]
     Indication: ERECTILE DYSFUNCTION
     Dosage: DAILY DOSE:100MG
     Route: 048
  2. LIPITOR [Suspect]
     Indication: ILL-DEFINED DISORDER
     Dosage: DAILY DOSE:20MG
  3. BUMETANIDE [Suspect]
     Indication: ILL-DEFINED DISORDER
  4. FLOMAX [Concomitant]

REACTIONS (3)
  - DRUG INEFFECTIVE [None]
  - DRY MOUTH [None]
  - MUSCULOSKELETAL DISORDER [None]
